FAERS Safety Report 18840080 (Version 1)
Quarter: 2021Q1

REPORT INFORMATION
  Report Type: Report from Study
  Country: US (occurrence: US)
  Receive Date: 20210204
  Receipt Date: 20210204
  Transmission Date: 20210419
  Serious: No
  Sender: FDA-Public Use
  Company Number: US-EXELIXIS-CABO-20033974

PATIENT
  Sex: Female

DRUGS (2)
  1. CABOMETYX [Suspect]
     Active Substance: CABOZANTINIB S-MALATE
     Indication: RENAL CANCER
     Dosage: 60 MG, QD
     Dates: start: 20200918
  2. CABOMETYX [Suspect]
     Active Substance: CABOZANTINIB S-MALATE
     Dosage: 40 MG, QD
     Dates: start: 20201022

REACTIONS (9)
  - Fatigue [Recovering/Resolving]
  - Dysgeusia [Unknown]
  - Decreased appetite [Recovered/Resolved]
  - Alopecia [Not Recovered/Not Resolved]
  - Skin exfoliation [Unknown]
  - Stomatitis [Recovering/Resolving]
  - Asthenia [Unknown]
  - Constipation [Recovered/Resolved]
  - Palmar-plantar erythrodysaesthesia syndrome [Recovering/Resolving]
